FAERS Safety Report 15725311 (Version 3)
Quarter: 2018Q4

REPORT INFORMATION
  Report Type: Report from Study
  Country: None (occurrence: DO)
  Receive Date: 20181215
  Receipt Date: 20181220
  Transmission Date: 20190205
  Serious: Yes (Other)
  Sender: FDA-Public Use
  Company Number: DO-ABBVIE-18K-279-2592868-00

PATIENT
  Age: 50 Year
  Sex: Male

DRUGS (13)
  1. CLOPIDOGREL [Concomitant]
     Active Substance: CLOPIDOGREL BISULFATE
     Indication: PRODUCT USED FOR UNKNOWN INDICATION
  2. GLUCOX [Concomitant]
     Indication: DIABETES MELLITUS
     Dosage: EVERY NIGHT
  3. SIMVASTATIN. [Concomitant]
     Active Substance: SIMVASTATIN
     Indication: BLOOD CHOLESTEROL INCREASED
  4. CARDIATONE [Concomitant]
     Indication: HYPERTENSION
  5. CATAPRESAN [Concomitant]
     Active Substance: CLONIDINE
     Indication: HYPERTENSION
     Route: 048
  6. CLENTEL [Concomitant]
     Indication: CHEST PAIN
     Route: 048
     Dates: start: 20181129
  7. LOSACOR [Concomitant]
     Active Substance: LOSARTAN POTASSIUM
     Indication: HYPERTENSION
     Route: 048
  8. AZORAN [Concomitant]
     Indication: CROHN^S DISEASE
  9. HUMIRA [Suspect]
     Active Substance: ADALIMUMAB
     Indication: CROHN^S DISEASE
     Route: 058
     Dates: start: 20140301, end: 20181003
  10. NEBILET [Concomitant]
     Active Substance: NEBIVOLOL
     Indication: HYPERTENSION
  11. LASIX [Concomitant]
     Active Substance: FUROSEMIDE
     Indication: FLUID RETENTION
     Dosage: EVERY MORNING
     Route: 048
     Dates: start: 20181129
  12. ALDACTONE [Concomitant]
     Active Substance: SPIRONOLACTONE
     Indication: FLUID RETENTION
     Route: 048
     Dates: start: 20181129
  13. EUKENE [Concomitant]
     Indication: HYPERTENSION
     Route: 048

REACTIONS (6)
  - Ventricular fibrillation [Not Recovered/Not Resolved]
  - Blood cholesterol increased [Recovering/Resolving]
  - Fatigue [Not Recovered/Not Resolved]
  - Hypertensive heart disease [Recovering/Resolving]
  - Renal artery occlusion [Recovering/Resolving]
  - Asthenia [Not Recovered/Not Resolved]

NARRATIVE: CASE EVENT DATE: 201811
